FAERS Safety Report 7317209 (Version 3)
Quarter: 2013Q2

REPORT INFORMATION
  Report Type: Report from Study
  Country: US (occurrence: US)
  Receive Date: 20100311
  Receipt Date: 20130520
  Transmission Date: 20140414
  Serious: Yes (Other)
  Sender: FDA-Public Use
  Company Number: PHHY2010US09421

PATIENT
  Age: 53 Year
  Sex: Female

DRUGS (12)
  1. EXTAVIA [Suspect]
     Indication: MULTIPLE SCLEROSIS
     Dosage: 0.3 MG, UNK
     Route: 058
     Dates: start: 20100210
  2. EXTAVIA [Suspect]
     Dosage: 0.062 MG, QOD
     Route: 058
     Dates: start: 20100211
  3. CLONAZEPAM [Concomitant]
     Indication: SLEEP DISORDER
     Dosage: 1 MG, QD
     Route: 048
  4. CITALOPRAM [Concomitant]
     Indication: DEPRESSION
     Dosage: 40 MG, QD
     Route: 048
  5. AMANTADINE [Concomitant]
     Dosage: 100 MG, BID
  6. MULTIVITAMINS [Concomitant]
     Dosage: UNK UKN, UNK
  7. OMEGA 3 FISH OIL [Concomitant]
     Dosage: UNK UKN, UNK
  8. ADVIL [Concomitant]
     Dosage: UNK UKN, UNK
  9. NABUMETONE [Concomitant]
     Indication: ARTHRITIS
     Dosage: 750 MG, BID
     Route: 048
  10. ALLEGRA [Concomitant]
     Dosage: 108 MG, UNK
     Route: 048
  11. PRAVASTATIN SODIUM [Concomitant]
     Dosage: 10 MG, UNK
     Route: 048
  12. METHYLPHENIDATE [Concomitant]
     Dosage: 10 MG, UNK
     Route: 048

REACTIONS (10)
  - Blindness transient [Unknown]
  - Visual impairment [Not Recovered/Not Resolved]
  - Vision blurred [Not Recovered/Not Resolved]
  - Feeling hot [Not Recovered/Not Resolved]
  - Myalgia [Recovered/Resolved]
  - Injection site erythema [Recovered/Resolved]
  - Headache [Recovered/Resolved]
  - Pyrexia [Not Recovered/Not Resolved]
  - Insomnia [Unknown]
  - Depression [Unknown]
